FAERS Safety Report 21033468 (Version 1)
Quarter: 2022Q3

REPORT INFORMATION
  Report Type: Spontaneous
  Country: JP (occurrence: JP)
  Receive Date: 20220701
  Receipt Date: 20220701
  Transmission Date: 20221026
  Serious: Yes (Other)
  Sender: FDA-Public Use
  Company Number: JP-OTSUKA-2022_031195

PATIENT
  Age: 38 Year
  Sex: Female

DRUGS (9)
  1. REXULTI [Suspect]
     Active Substance: BREXPIPRAZOLE
     Indication: Schizophrenia
     Dosage: 1MG X 1T/DAY, UNK
     Route: 048
     Dates: start: 20220516, end: 20220519
  2. REXULTI [Suspect]
     Active Substance: BREXPIPRAZOLE
     Indication: Schizophrenia
     Dosage: 2 MG/DAY, UNK
     Route: 048
     Dates: start: 20220520, end: 20220610
  3. ESTAZOLAM [Concomitant]
     Active Substance: ESTAZOLAM
     Indication: Product used for unknown indication
     Dosage: 2 MG/DAY, UNK
     Route: 065
  4. HALOPERIDOL [Concomitant]
     Active Substance: HALOPERIDOL
     Indication: Product used for unknown indication
     Dosage: 3MG X 6T/DAY, UNK
     Route: 065
  5. SODIUM FERROUS CITRATE [Concomitant]
     Active Substance: SODIUM FERROUS CITRATE
     Indication: Product used for unknown indication
     Dosage: 50 MG/DAY, UNK
     Route: 065
  6. ADENINE [Concomitant]
     Active Substance: ADENINE
     Indication: Product used for unknown indication
     Dosage: 10MG X 3T/DAY, UNK
     Route: 065
  7. RISPERIDONE [Concomitant]
     Active Substance: RISPERIDONE
     Indication: Product used for unknown indication
     Dosage: AT THE TIME OF UNREST, 2 MG/DAY
     Route: 065
  8. QUAZEPAM [Concomitant]
     Active Substance: QUAZEPAM
     Indication: Product used for unknown indication
     Dosage: AT THE TIME OF SLEEPLESSNESS, 20MG X 1T/DAY
     Route: 065
  9. ARIPIPRAZOLE [Concomitant]
     Active Substance: ARIPIPRAZOLE
     Indication: Product used for unknown indication
     Dosage: 12MG X 2T/DAY, UNK
     Route: 065
     Dates: start: 20220419, end: 20220516

REACTIONS (3)
  - Bradycardia [Recovered/Resolved]
  - Neutrophil count decreased [Recovered/Resolved]
  - White blood cell count decreased [Recovered/Resolved]

NARRATIVE: CASE EVENT DATE: 20220610
